FAERS Safety Report 17033266 (Version 3)
Quarter: 2020Q2

REPORT INFORMATION
  Report Type: Spontaneous
  Country: US (occurrence: US)
  Receive Date: 20191114
  Receipt Date: 20200616
  Transmission Date: 20200713
  Serious: Yes (Hospitalization)
  Sender: FDA-Public Use
  Company Number: US-SANOFI-AVENTIS-2011SA044959

PATIENT

DRUGS (3)
  1. LANTUS [Suspect]
     Active Substance: INSULIN GLARGINE
     Indication: TYPE 2 DIABETES MELLITUS
     Dosage: 10 IU, QD AT NIGHT
     Route: 058
     Dates: start: 2010
  2. LANTUS [Suspect]
     Active Substance: INSULIN GLARGINE
     Dosage: 14 IU, QD AT NIGHT
     Route: 065
  3. LANTUS [Suspect]
     Active Substance: INSULIN GLARGINE
     Dosage: 20 IU, QD, 1 TIME DAILY,IN THE MORNING
     Route: 065

REACTIONS (6)
  - Gait disturbance [Unknown]
  - Blood glucose increased [Recovered/Resolved]
  - Hospitalisation [Unknown]
  - Device operational issue [Recovered/Resolved]
  - Feeling abnormal [Unknown]
  - Injury associated with device [Unknown]

NARRATIVE: CASE EVENT DATE: 20110711
